FAERS Safety Report 19507584 (Version 10)
Quarter: 2024Q4

REPORT INFORMATION
  Report Type: Spontaneous
  Country: US (occurrence: US)
  Receive Date: 20210708
  Receipt Date: 20241226
  Transmission Date: 20250115
  Serious: No
  Sender: PFIZER
  Company Number: US-PFIZER INC-2021619723

PATIENT
  Age: 69 Year
  Sex: Female

DRUGS (5)
  1. INLYTA [Suspect]
     Active Substance: AXITINIB
     Indication: Renal cancer stage IV
     Dosage: 5 MG
     Dates: start: 20210501
  2. INLYTA [Suspect]
     Active Substance: AXITINIB
     Dosage: 1 MG
     Dates: start: 20210628
  3. INLYTA [Suspect]
     Active Substance: AXITINIB
     Dosage: 2 MG, 2X/DAY (2 PILLS IN THE MORNING AND 2 AT NIGHT)
     Route: 048
  4. NEURONTIN [Concomitant]
     Active Substance: GABAPENTIN
     Dosage: 300 MG, DAILY FOR 3 WEEKS
     Dates: start: 20221025
  5. NEURONTIN [Concomitant]
     Active Substance: GABAPENTIN
     Dosage: 300 MG, 2X/DAY AFTER 3 WEEKS

REACTIONS (6)
  - Neoplasm progression [Unknown]
  - Diarrhoea [Recovering/Resolving]
  - Fatigue [Unknown]
  - Flatulence [Unknown]
  - Urinary tract infection [Unknown]
  - Drug hypersensitivity [Unknown]
